FAERS Safety Report 24447754 (Version 2)
Quarter: 2024Q4

REPORT INFORMATION
  Report Type: Spontaneous
  Country: US (occurrence: US)
  Receive Date: 20241016
  Receipt Date: 20241124
  Transmission Date: 20250115
  Serious: No
  Sender: SANOFI AVENTIS
  Company Number: US-SA-2024SA294998

PATIENT
  Age: 46 Year
  Sex: Female

DRUGS (1)
  1. DUPIXENT [Suspect]
     Active Substance: DUPILUMAB
     Indication: Nasal polyps
     Dosage: 300 MG, QOW
     Route: 058
     Dates: start: 20240925

REACTIONS (10)
  - Inflammation [Not Recovered/Not Resolved]
  - Skin irritation [Recovered/Resolved]
  - Inappropriate schedule of product administration [Recovered/Resolved]
  - Dyspnoea [Unknown]
  - Sneezing [Unknown]
  - Rhinorrhoea [Unknown]
  - Therapeutic response shortened [Unknown]
  - Eye discharge [Not Recovered/Not Resolved]
  - Vision blurred [Not Recovered/Not Resolved]
  - Arthralgia [Not Recovered/Not Resolved]

NARRATIVE: CASE EVENT DATE: 20240101
